FAERS Safety Report 6741669-6 (Version None)
Quarter: 2010Q2

REPORT INFORMATION
  Report Type: 
  Country: None (occurrence: None)
  Receive Date: 20100526
  Receipt Date: 20100517
  Transmission Date: 20101027
  Serious: Yes (Hospitalization)
  Sender: FDA-Public Use
  Company Number: US-BAYER-201022755NA

PATIENT
  Age: 28 Year
  Sex: Female

DRUGS (2)
  1. MIRENA [Suspect]
     Indication: CONTRACEPTION
     Route: 015
     Dates: start: 20060101, end: 20100510
  2. MIRENA [Suspect]
     Route: 015
     Dates: end: 20100510

REACTIONS (3)
  - DEVICE DISLOCATION [None]
  - PAIN [None]
  - UTERINE PERFORATION [None]
